FAERS Safety Report 15071161 (Version 1)
Quarter: 2018Q2

REPORT INFORMATION
  Report Type: Report from Study
  Country: US (occurrence: US)
  Receive Date: 20180626
  Receipt Date: 20180626
  Transmission Date: 20180711
  Serious: No
  Sender: FDA-Public Use
  Company Number: US-AMGEN-USASL2015002866

PATIENT
  Age: 72 Year
  Sex: Female

DRUGS (1)
  1. PROLIA [Suspect]
     Active Substance: DENOSUMAB
     Indication: OSTEOPOROSIS
     Dosage: UNK
     Route: 065
     Dates: start: 20140724

REACTIONS (5)
  - Eye pain [Recovered/Resolved]
  - Bone pain [Recovered/Resolved]
  - Dry eye [Recovered/Resolved]
  - Joint swelling [Recovered/Resolved]
  - Acne [Unknown]

NARRATIVE: CASE EVENT DATE: 201408
